FAERS Safety Report 6359313-9 (Version None)
Quarter: 2009Q3

REPORT INFORMATION
  Report Type: 
  Country: None (occurrence: None)
  Receive Date: 20090917
  Receipt Date: 20090907
  Transmission Date: 20100115
  Serious: Yes (Hospitalization, Disabling)
  Sender: FDA-Public Use
  Company Number: FR-MYLANLABS-2008S1016225

PATIENT
  Age: 3 Year
  Sex: Male

DRUGS (11)
  1. MERCAPTAMINE BITARTRATE [Suspect]
     Indication: CYSTINOSIS
     Route: 048
     Dates: start: 20031218
  2. MERCAPTAMINE BITARTRATE [Suspect]
     Route: 048
  3. SODIUM BICARBONATE IN PLASTIC CONTAINER [Concomitant]
     Dates: start: 20030901
  4. OMEPRAZOLE [Concomitant]
     Dates: start: 20040727
  5. L-CARNITINE [Concomitant]
     Dates: start: 20040812
  6. POTASSIUM CITRATE [Concomitant]
  7. DOMPERIDONE [Concomitant]
  8. SODIUM PHOSPHATE W/SODIUM PHOSPHATE DIBASIC [Concomitant]
     Dates: start: 20030901
  9. ALPHACALCIDOL [Concomitant]
     Dates: start: 20040113
  10. CYSTEAMINE /00492501/ [Concomitant]
     Route: 047
     Dates: start: 20040330
  11. SYTRON [Concomitant]
     Dates: start: 20030901, end: 20060215

REACTIONS (3)
  - GAIT DISTURBANCE [None]
  - MULTIPLE EPIPHYSEAL DYSPLASIA [None]
  - MUSCLE CONTRACTURE [None]
